FAERS Safety Report 8791246 (Version 1)
Quarter: 2012Q4

REPORT INFORMATION
  Report Type: Spontaneous
  Country: US (occurrence: None)
  Receive Date: 20120914
  Receipt Date: 20120914
  Transmission Date: 20130627
  Serious: Yes (Hospitalization)
  Sender: FDA-Public Use
  Company Number: None

PATIENT
  Sex: Male
  Weight: 59.3 kg

DRUGS (10)
  1. COUMADIN [Suspect]
     Indication: ATRIAL FIBRILLATION
     Dosage: 5 mg/mwf/tthss
CHRONIC/CHRONIC
     Route: 048
  2. COUMADIN [Suspect]
     Indication: ATRIAL FIBRILLATION
  3. ASA [Suspect]
  4. ASA [Suspect]
  5. OMEPRAZOLE [Concomitant]
  6. ZETIA [Concomitant]
  7. MVI [Concomitant]
  8. CARVIDILOL [Concomitant]
  9. ZOLOFT [Concomitant]
  10. CLONAZEPAM [Concomitant]

REACTIONS (4)
  - Anaemia [None]
  - Coagulopathy [None]
  - International normalised ratio increased [None]
  - Sciatica [None]
